FAERS Safety Report 8666829 (Version 4)
Quarter: 2013Q1

REPORT INFORMATION
  Report Type: Report from Study
  Country: JP (occurrence: JP)
  Receive Date: 20120716
  Receipt Date: 20130114
  Transmission Date: 20140127
  Serious: Yes (Death, Hospitalization, Other)
  Sender: FDA-Public Use
  Company Number: JP-CELGENEUS-087-21660-12071116

PATIENT
  Age: 63 Year
  Sex: Female
  Weight: 45 kg

DRUGS (27)
  1. ABRAXANE [Suspect]
     Indication: BREAST CANCER METASTATIC
     Dosage: 405 MILLIGRAM
     Route: 041
     Dates: start: 20110107
  2. ABRAXANE [Suspect]
     Dosage: 330 MILLIGRAM
     Route: 041
     Dates: start: 20110128, end: 20110408
  3. ABRAXANE [Suspect]
     Dosage: 370 MILLIGRAM
     Route: 041
     Dates: start: 20110506, end: 20120427
  4. VIDAZA [Suspect]
     Indication: PRODUCT USED FOR UNKNOWN INDICATION
     Dosage: 105 MILLIGRAM
     Route: 065
     Dates: start: 20120718, end: 20120724
  5. VIDAZA [Suspect]
     Dosage: 100 MILLIGRAM
     Route: 065
     Dates: start: 20120820
  6. FARESTON [Suspect]
     Indication: BREAST CANCER METASTATIC
     Dosage: 40 MILLIGRAM
     Route: 048
     Dates: start: 20101015, end: 20101208
  7. FARESTON [Suspect]
     Dosage: 80 MILLIGRAM
     Route: 048
     Dates: start: 20111021, end: 20111208
  8. NAVELBINE [Suspect]
     Indication: BREAST CANCER METASTATIC
     Dosage: 37 MILLIGRAM
     Route: 041
     Dates: start: 20100820, end: 20101119
  9. AROMASIN [Suspect]
     Indication: BREAST CANCER METASTATIC
     Dosage: 25 MILLIGRAM
     Route: 048
     Dates: start: 20100820, end: 20101014
  10. ALESION [Concomitant]
     Indication: COUGH
     Dosage: 20 MILLIGRAM
     Route: 048
     Dates: start: 20110128, end: 20120405
  11. ALESION [Concomitant]
     Indication: DYSPNOEA
  12. LOCOID [Concomitant]
     Indication: ERYTHEMA
     Dosage: 5 GRAM
     Route: 065
     Dates: start: 20110318, end: 20110318
  13. LENDORMIN D [Concomitant]
     Indication: INSOMNIA
     Dosage: .25 MILLIGRAM
     Route: 048
     Dates: start: 20110408, end: 20120110
  14. GRANISETRON HYDROCHLORIDE [Concomitant]
     Indication: PROPHYLAXIS OF NAUSEA AND VOMITING
     Dosage: 3 MILLIGRAM
     Route: 041
     Dates: start: 20110107, end: 20120427
  15. DEXART [Concomitant]
     Indication: PROPHYLAXIS OF NAUSEA AND VOMITING
     Dosage: 6.6 MILLIGRAM
     Route: 041
     Dates: start: 20110107, end: 20120427
  16. NEU-UP [Concomitant]
     Indication: NEUTROPHIL COUNT DECREASED
     Dosage: 50 MICROGRAM
     Route: 058
     Dates: start: 20110604, end: 20120504
  17. GOSHAJINKIGAN [Concomitant]
     Indication: HYPOAESTHESIA
     Route: 048
     Dates: start: 20110729
  18. FASLODEX [Concomitant]
     Indication: BREAST CANCER METASTATIC
     Dosage: 500 MILLIGRAM
     Route: 030
     Dates: start: 20111209, end: 20120524
  19. PACKED RED BLOOD CELL [Concomitant]
     Indication: PRODUCT USED FOR UNKNOWN INDICATION
     Route: 030
     Dates: start: 20120703, end: 20121013
  20. PLATELET [Concomitant]
     Indication: PRODUCT USED FOR UNKNOWN INDICATION
     Route: 030
     Dates: start: 20120703, end: 20121013
  21. CODEINE PHOSPHATE HYDRATE [Concomitant]
     Indication: COUGH
     Dosage: 180 MILLIGRAM
     Route: 048
     Dates: start: 20110506, end: 20110519
  22. BEROTEC [Concomitant]
     Indication: BRONCHITIS
     Dosage: 7.5 MILLIGRAM
     Route: 048
     Dates: start: 20110506, end: 20110519
  23. MUCOSOLVAN [Concomitant]
     Indication: COUGH
     Dosage: 45 MILLIGRAM
     Route: 048
     Dates: start: 20110506, end: 20110530
  24. ARIMIDEX [Concomitant]
     Indication: BREAST CANCER METASTATIC
     Dosage: 1 MILLIGRAM
     Route: 065
     Dates: start: 20120629
  25. ACLACINON [Concomitant]
     Indication: PRODUCT USED FOR UNKNOWN INDICATION
     Dosage: 18 MILLIGRAM
     Route: 065
     Dates: start: 20120927
  26. ACLACINON [Concomitant]
     Dosage: 20 MILLIGRAM
     Route: 065
     Dates: start: 20120930, end: 20121008
  27. PLATELETS [Concomitant]
     Indication: PRODUCT USED FOR UNKNOWN INDICATION
     Route: 030
     Dates: start: 20120703, end: 20121013

REACTIONS (6)
  - Acute myeloid leukaemia [Fatal]
  - Myelodysplastic syndrome transformation [Fatal]
  - White blood cell count decreased [Recovering/Resolving]
  - Neutrophil count decreased [Recovering/Resolving]
  - White blood cell count decreased [Recovering/Resolving]
  - Neutrophil count decreased [Recovering/Resolving]
